FAERS Safety Report 10248057 (Version 2)
Quarter: 2015Q3

REPORT INFORMATION
  Report Type: Spontaneous
  Country: US (occurrence: US)
  Receive Date: 20140619
  Receipt Date: 20150817
  Transmission Date: 20151125
  Serious: No
  Sender: FDA-Public Use
  Company Number: US-GILEAD-2014-0105844

PATIENT
  Age: 65 Year
  Sex: Male

DRUGS (1)
  1. LETAIRIS [Suspect]
     Active Substance: AMBRISENTAN
     Indication: PRODUCT USED FOR UNKNOWN INDICATION
     Dosage: 10 MG, QD
     Route: 065
     Dates: start: 20130521

REACTIONS (12)
  - Cough [Not Recovered/Not Resolved]
  - Palpitations [Unknown]
  - Oedema [Unknown]
  - Micturition urgency [Unknown]
  - Muscular weakness [Unknown]
  - Dizziness [Unknown]
  - Defaecation urgency [Unknown]
  - Fatigue [Unknown]
  - Exercise tolerance decreased [Unknown]
  - Headache [Unknown]
  - Dyspnoea [Not Recovered/Not Resolved]
  - Nasal congestion [Unknown]
